FAERS Safety Report 9415352 (Version 2)
Quarter: 2013Q3

REPORT INFORMATION
  Report Type: Spontaneous
  Country: US (occurrence: US)
  Receive Date: 20130723
  Receipt Date: 20130830
  Transmission Date: 20140515
  Serious: No
  Sender: FDA-Public Use
  Company Number: US-BAXTER-2013BAX027957

PATIENT
  Age: 57 Year
  Sex: Female
  Weight: 70.45 kg

DRUGS (2)
  1. GAMMAGARD LIQUID [Suspect]
     Indication: HYPOGAMMAGLOBULINAEMIA
     Route: 042
     Dates: start: 201208
  2. BENADRYL [Concomitant]
     Indication: PREMEDICATION

REACTIONS (1)
  - Dehydration [Recovered/Resolved]
